FAERS Safety Report 9456377 (Version 1)
Quarter: 2013Q3

REPORT INFORMATION
  Report Type: Spontaneous
  Country: DE (occurrence: DE)
  Receive Date: 20130813
  Receipt Date: 20130813
  Transmission Date: 20140515
  Serious: Yes (Hospitalization)
  Sender: FDA-Public Use
  Company Number: DE-EISAI INC-E2090-02726-SPO-DE

PATIENT
  Age: 9 Year
  Sex: Male
  Weight: 30 kg

DRUGS (1)
  1. ZONEGRAN [Suspect]
     Indication: PETIT MAL EPILEPSY
     Route: 048
     Dates: start: 201007, end: 201009

REACTIONS (6)
  - Flushing [Recovered/Resolved]
  - Hyperthermia [Recovered/Resolved]
  - Hypohidrosis [Recovered/Resolved]
  - Convulsion [Recovered/Resolved]
  - Irritability [Unknown]
  - Off label use [Unknown]
